FAERS Safety Report 4451558-8 (Version None)
Quarter: 2004Q3

REPORT INFORMATION
  Report Type: 
  Country: None (occurrence: None)
  Receive Date: 20040915
  Receipt Date: 20040903
  Transmission Date: 20050211
  Serious: Yes (Hospitalization)
  Sender: FDA-Public Use
  Company Number: US-2004-031402

PATIENT
  Age: 39 Year
  Sex: Female

DRUGS (1)
  1. BETASERON [Suspect]
     Indication: MULTIPLE SCLEROSIS
     Dosage: 8 MIU, EVERY 2D, SUBCUTANEOUS
     Route: 058
     Dates: start: 20030206

REACTIONS (9)
  - BENIGN INTRACRANIAL HYPERTENSION [None]
  - BLOOD CREATININE INCREASED [None]
  - BLOOD ELECTROLYTES ABNORMAL [None]
  - BLOOD UREA DECREASED [None]
  - CONNECTIVE TISSUE DISORDER [None]
  - DRY SKIN [None]
  - HEPATIC ENZYME INCREASED [None]
  - INJECTION SITE REACTION [None]
  - VASCULITIS [None]
